FAERS Safety Report 23616394 (Version 1)
Quarter: 2024Q1

REPORT INFORMATION
  Report Type: Spontaneous
  Country: US (occurrence: None)
  Receive Date: 20240308
  Receipt Date: 20240308
  Transmission Date: 20240410
  Serious: Yes (Other)
  Sender: FDA-Public Use
  Company Number: None

PATIENT
  Age: 41 Year
  Sex: Male
  Weight: 103.5 kg

DRUGS (8)
  1. SPINACH [Suspect]
     Active Substance: SPINACH
     Indication: Product used for unknown indication
     Dates: start: 20240306, end: 20240306
  2. TRAZODONE [Suspect]
     Active Substance: TRAZODONE HYDROCHLORIDE
  3. FEBUXOSTAT [Concomitant]
     Active Substance: FEBUXOSTAT
  4. LISINOPRIL [Concomitant]
     Active Substance: LISINOPRIL
  5. CINNAMON [Concomitant]
     Active Substance: CINNAMON
  6. mens one a day [Concomitant]
  7. FISH OIL [Concomitant]
     Active Substance: FISH OIL
  8. EMTRICITABINE\TENOFOVIR [Concomitant]
     Active Substance: EMTRICITABINE\TENOFOVIR

REACTIONS (13)
  - Dyspnoea [None]
  - Heart rate increased [None]
  - Paraesthesia [None]
  - Balance disorder [None]
  - Pain [None]
  - Myalgia [None]
  - Panic attack [None]
  - Tachyphrenia [None]
  - Diarrhoea [None]
  - Headache [None]
  - Neck pain [None]
  - Gastrointestinal sounds abnormal [None]
  - Food poisoning [None]

NARRATIVE: CASE EVENT DATE: 20240306
